FAERS Safety Report 4430834-9 (Version None)
Quarter: 2004Q3

REPORT INFORMATION
  Report Type: 
  Country: None (occurrence: None)
  Receive Date: 20040823
  Receipt Date: 20040616
  Transmission Date: 20050211
  Serious: Yes (Hospitalization, Disabling)
  Sender: FDA-Public Use
  Company Number: US-MERCK-0406USA01717

PATIENT
  Age: 58 Year
  Sex: Female
  Weight: 61 kg

DRUGS (2)
  1. VIOXX [Suspect]
     Indication: OSTEOARTHRITIS
     Route: 048
     Dates: start: 19990723, end: 20000101
  2. VIOXX [Suspect]
     Indication: INFLAMMATION
     Route: 048
     Dates: start: 19990723, end: 20000101

REACTIONS (19)
  - ATAXIA [None]
  - BLOOD PRESSURE INCREASED [None]
  - CARDIAC DISORDER [None]
  - DIABETES MELLITUS NON-INSULIN-DEPENDENT [None]
  - DIZZINESS [None]
  - DRUG INEFFECTIVE [None]
  - DRY SKIN [None]
  - FIBROMYALGIA [None]
  - GOUT [None]
  - INNER EAR DISORDER [None]
  - MENTAL STATUS CHANGES [None]
  - METABOLIC SYNDROME [None]
  - OBESITY [None]
  - POLLAKIURIA [None]
  - RAYNAUD'S PHENOMENON [None]
  - SINUSITIS [None]
  - ULCER [None]
  - UPPER RESPIRATORY TRACT INFECTION [None]
  - VERTEBROBASILAR INSUFFICIENCY [None]
